FAERS Safety Report 7493063-0 (Version None)
Quarter: 2011Q2

REPORT INFORMATION
  Report Type: 
  Country: None (occurrence: None)
  Receive Date: 20110520
  Receipt Date: 20110517
  Transmission Date: 20111010
  Serious: No
  Sender: FDA-Public Use
  Company Number: US-PFIZER INC-2011105983

PATIENT
  Sex: Female
  Weight: 68.027 kg

DRUGS (4)
  1. WELLBUTRIN [Concomitant]
     Indication: BIPOLAR DISORDER
     Dosage: UNK
  2. LEXAPRO [Concomitant]
     Indication: BIPOLAR DISORDER
     Dosage: UNK
  3. GEODON [Suspect]
     Indication: BIPOLAR DISORDER
     Dosage: 160 MG, DAILY
     Route: 048
     Dates: start: 20051201, end: 20100601
  4. LAMICTAL [Concomitant]
     Indication: BIPOLAR DISORDER
     Dosage: UNK

REACTIONS (1)
  - INSOMNIA [None]
